FAERS Safety Report 7603099-4 (Version None)
Quarter: 2011Q3

REPORT INFORMATION
  Report Type: 
  Country: None (occurrence: None)
  Receive Date: 20110712
  Receipt Date: 20110708
  Transmission Date: 20111222
  Serious: Yes (Disabling)
  Sender: FDA-Public Use
  Company Number: NO-PFIZER INC-2011153878

PATIENT
  Age: 69 Year
  Sex: Female

DRUGS (1)
  1. ZYVOX [Suspect]
     Indication: INFECTION
     Dates: start: 20110624, end: 20110626

REACTIONS (2)
  - PARAESTHESIA [None]
  - VISION BLURRED [None]
